FAERS Safety Report 18679893 (Version 1)
Quarter: 2020Q4

REPORT INFORMATION
  Report Type: Report from Study
  Country: US (occurrence: US)
  Receive Date: 20201230
  Receipt Date: 20201230
  Transmission Date: 20210114
  Serious: Yes (Hospitalization)
  Sender: FDA-Public Use
  Company Number: US-PTC THERAPEUTICS, INC.-US-2020PTC000812

PATIENT

DRUGS (1)
  1. EMFLAZA [Suspect]
     Active Substance: DEFLAZACORT
     Indication: ILLNESS
     Dosage: 0.7ML/16MG, QD (22.75MG/ML BT 13 ML CP CAP)
     Route: 048

REACTIONS (3)
  - Appendicectomy [Unknown]
  - Cholecystectomy [Unknown]
  - Central nervous system infection [Unknown]
